FAERS Safety Report 19212973 (Version 8)
Quarter: 2022Q4

REPORT INFORMATION
  Report Type: Spontaneous
  Country: US (occurrence: US)
  Receive Date: 20210504
  Receipt Date: 20221222
  Transmission Date: 20230112
  Serious: No
  Sender: FDA-Public Use
  Company Number: US-VERTEX PHARMACEUTICALS-2021-003509

PATIENT
  Age: 35 Year
  Sex: Female
  Weight: 57 kg

DRUGS (31)
  1. TRIKAFTA [Suspect]
     Active Substance: ELEXACAFTOR\IVACAFTOR\TEZACAFTOR
     Indication: Cystic fibrosis
     Dosage: 2 ORANGE TABS PM
     Route: 048
     Dates: start: 20210205, end: 2021
  2. TRIKAFTA [Suspect]
     Active Substance: ELEXACAFTOR\IVACAFTOR\TEZACAFTOR
     Dosage: 1 ORANGE TAB PM
     Route: 048
     Dates: start: 2021
  3. DUPIXENT [Suspect]
     Active Substance: DUPILUMAB
     Indication: Asthma
     Dosage: 200 MILLIGRAM
     Route: 058
     Dates: start: 20191203
  4. DUPIXENT [Suspect]
     Active Substance: DUPILUMAB
     Indication: Infective pulmonary exacerbation of cystic fibrosis
     Dosage: 175MG/ML
     Route: 065
     Dates: start: 20191203
  5. DUPIXENT [Suspect]
     Active Substance: DUPILUMAB
     Indication: Pseudomonas infection
  6. PULMOZYME [Concomitant]
     Active Substance: DORNASE ALFA
  7. TOBI [Concomitant]
     Active Substance: TOBRAMYCIN
  8. CAYSTON [Concomitant]
     Active Substance: AZTREONAM
  9. ADVAIR HFA [Concomitant]
     Active Substance: FLUTICASONE PROPIONATE\SALMETEROL XINAFOATE
  10. ALEVE [Concomitant]
     Active Substance: NAPROXEN SODIUM
  11. ALLEGRA ALLERGY [Concomitant]
     Active Substance: FEXOFENADINE HYDROCHLORIDE
  12. AZITHROMYCIN [Concomitant]
     Active Substance: AZITHROMYCIN
     Dosage: 500 UNK
  13. CALCIUM CARBONATE [Concomitant]
     Active Substance: CALCIUM CARBONATE
  14. CEFUROXIME [Concomitant]
     Active Substance: CEFUROXIME
  15. CHEWABLE IRON [Concomitant]
  16. CREON [Concomitant]
     Active Substance: PANCRELIPASE AMYLASE\PANCRELIPASE LIPASE\PANCRELIPASE PROTEASE
  17. DAILY-VITE [Concomitant]
  18. DOXYCYCLINE [Concomitant]
     Active Substance: DOXYCYCLINE
  19. FLOVENT [Concomitant]
     Active Substance: FLUTICASONE PROPIONATE
  20. LEVALBUTEROL [Concomitant]
     Active Substance: LEVALBUTEROL
  21. MAGNESIUM [Concomitant]
     Active Substance: MAGNESIUM
  22. MEROPENEM [Concomitant]
     Active Substance: MEROPENEM
  23. NAC [Concomitant]
  24. PEPCID [Concomitant]
     Active Substance: FAMOTIDINE
  25. QNASL [Concomitant]
     Active Substance: BECLOMETHASONE DIPROPIONATE
  26. SUMATRIPTAN SUCCINATE [Concomitant]
     Active Substance: SUMATRIPTAN SUCCINATE
  27. TOBRAMYCIN [Concomitant]
     Active Substance: TOBRAMYCIN
  28. VENLAFAXINE [Concomitant]
     Active Substance: VENLAFAXINE HYDROCHLORIDE
  29. VITAMIN B COMPLEX [Concomitant]
     Active Substance: CYANOCOBALAMIN\DEXPANTHENOL\NIACINAMIDE\PYRIDOXINE HYDROCHLORIDE\RIBOFLAVIN 5^-PHOSPHATE SODIUM\THIA
  30. VITAMIN C [Concomitant]
     Active Substance: ASCORBIC ACID
     Dosage: 1000 MG
  31. VITAMIN D3 [Concomitant]
     Active Substance: CHOLECALCIFEROL

REACTIONS (6)
  - Feeling abnormal [Recovered/Resolved]
  - Throat tightness [Unknown]
  - Aphonia [Unknown]
  - Dysphagia [Unknown]
  - Gastrooesophageal reflux disease [Unknown]
  - Larynx irritation [Unknown]

NARRATIVE: CASE EVENT DATE: 20210201
